FAERS Safety Report 10241730 (Version 1)
Quarter: 2014Q2

REPORT INFORMATION
  Report Type: Report from Study
  Country: MX (occurrence: MX)
  Receive Date: 20140617
  Receipt Date: 20140617
  Transmission Date: 20141212
  Serious: Yes (Hospitalization, Other)
  Sender: FDA-Public Use
  Company Number: PHHY2014MX074751

PATIENT
  Age: 74 Year
  Sex: Female

DRUGS (4)
  1. ACLASTA [Suspect]
     Indication: OSTEOPOROSIS
     Dosage: 5 MG/100ML ANNUAL
     Route: 042
  2. ACLASTA [Suspect]
     Dosage: 5 MG/100ML ANNUAL
     Route: 042
  3. ACLASTA [Suspect]
     Dosage: 5 MG/100ML ANNUAL
     Route: 042
  4. ACLASTA [Suspect]
     Dosage: 5 MG/100ML ANNUAL
     Route: 042
     Dates: start: 2013

REACTIONS (4)
  - Diverticular perforation [Not Recovered/Not Resolved]
  - Intestinal perforation [Not Recovered/Not Resolved]
  - Abdominal abscess [Not Recovered/Not Resolved]
  - Diverticulum [Not Recovered/Not Resolved]
